FAERS Safety Report 14299957 (Version 1)
Quarter: 2017Q4

REPORT INFORMATION
  Report Type: Report from Study
  Country: US (occurrence: US)
  Receive Date: 20171219
  Receipt Date: 20171219
  Transmission Date: 20180321
  Serious: Yes (Hospitalization)
  Sender: FDA-Public Use
  Company Number: US-BIOGEN-2017BI00498298

PATIENT
  Sex: Female

DRUGS (2)
  1. FORMOTEROL [Concomitant]
     Active Substance: FORMOTEROL
     Indication: MULTIPLE SCLEROSIS RELAPSE
     Route: 065
  2. AVONEX [Suspect]
     Active Substance: INTERFERON BETA-1A
     Indication: MULTIPLE SCLEROSIS
     Route: 030

REACTIONS (5)
  - Blindness [Unknown]
  - Viral infection [Unknown]
  - Loss of control of legs [Unknown]
  - Bacterial infection [Unknown]
  - Neuropathy peripheral [Unknown]
